FAERS Safety Report 8844570 (Version 1)
Quarter: 2012Q4

REPORT INFORMATION
  Report Type: 
  Country: US (occurrence: US)
  Receive Date: 20121017
  Receipt Date: 20121017
  Transmission Date: 20130627
  Serious: No
  Sender: FDA-Public Use
  Company Number: US-VERTEX PHARMACEUTICAL INC.-2012-022507

PATIENT
  Age: 50 Year
  Sex: Male
  Weight: 113 kg

DRUGS (3)
  1. INCIVEK [Suspect]
     Indication: HEPATITIS C
     Dosage: 750 mg, tid
     Route: 048
     Dates: start: 201204
  2. RIBAVIRIN [Suspect]
     Indication: HEPATITIS C
     Dosage: 400 mg, bid
     Route: 048
     Dates: start: 201204, end: 20121003
  3. PEGASYS [Suspect]
     Indication: HEPATITIS C
     Dosage: 90 ?g, weekly
     Route: 058
     Dates: start: 201204, end: 20121003

REACTIONS (1)
  - Drug ineffective [Not Recovered/Not Resolved]
